FAERS Safety Report 14348246 (Version 6)
Quarter: 2018Q3

REPORT INFORMATION
  Report Type: Spontaneous
  Country: FR (occurrence: FR)
  Receive Date: 20180103
  Receipt Date: 20180928
  Transmission Date: 20181010
  Serious: Yes (Other)
  Sender: FDA-Public Use
  Company Number: PHHY2017FR196335

PATIENT
  Age: 76 Year
  Sex: Male
  Weight: 67 kg

DRUGS (37)
  1. REVLIMID [Suspect]
     Active Substance: LENALIDOMIDE
     Dosage: 10 MILLIGRAM
     Route: 048
     Dates: start: 20161128, end: 20161218
  2. RAMIPRIL. [Concomitant]
     Active Substance: RAMIPRIL
     Indication: RENAL FAILURE
     Dosage: 2.5 MG, UNK
     Route: 048
     Dates: start: 201309
  3. ENOXAPARINE SODIQUE [Concomitant]
     Active Substance: ENOXAPARIN SODIUM
     Indication: PROPHYLAXIS
     Dosage: 8000 IU, UNK
     Route: 058
     Dates: start: 20171019
  4. ZOLPIDEM [Concomitant]
     Active Substance: ZOLPIDEM\ZOLPIDEM TARTRATE
     Indication: DEPRESSION
     Dosage: 10 MG, QD
     Route: 048
     Dates: start: 20170320
  5. EPOETIN ALFA [Concomitant]
     Active Substance: ERYTHROPOIETIN
     Indication: ANAEMIA
     Dosage: 30000 IU, QW (4285.7143 IU (INTERNATIONAL UNIT)   )
     Route: 058
     Dates: start: 20170808
  6. DEXAMETHASONE. [Suspect]
     Active Substance: DEXAMETHASONE
     Indication: PLASMA CELL MYELOMA
     Dosage: 20 MILLIGRAM
     Route: 048
     Dates: start: 20160927, end: 20161011
  7. REVLIMID [Suspect]
     Active Substance: LENALIDOMIDE
     Dosage: 5 MILLIGRAM
     Route: 048
     Dates: start: 20171018, end: 20171019
  8. ATORVASTATIN [Concomitant]
     Active Substance: ATORVASTATIN
     Indication: HYPERCHOLESTEROLAEMIA
     Dosage: 10 MG, QD
     Route: 048
  9. SITAGLIPTINE [Concomitant]
     Active Substance: SITAGLIPTIN
     Indication: TYPE 2 DIABETES MELLITUS
     Dosage: 100 MG, QD
     Route: 058
     Dates: start: 2013
  10. VENLAFAXINE [Concomitant]
     Active Substance: VENLAFAXINE HYDROCHLORIDE
     Indication: DEPRESSION
     Dosage: 75 MG, QD
     Route: 048
     Dates: start: 20161020
  11. DEXAMETHASONE. [Suspect]
     Active Substance: DEXAMETHASONE
     Dosage: 40 MG, UNK
     Route: 048
     Dates: start: 20160927, end: 20161011
  12. DEXAMETHASONE. [Suspect]
     Active Substance: DEXAMETHASONE
     Dosage: 40 MG, UNK
     Route: 041
     Dates: start: 20171018, end: 20171018
  13. DEXAMETHASONE. [Suspect]
     Active Substance: DEXAMETHASONE
     Dosage: 20 MILLIGRAM
     Route: 041
     Dates: start: 20171018, end: 20171018
  14. REVLIMID [Suspect]
     Active Substance: LENALIDOMIDE
     Dosage: 105 MG, UNK
     Route: 048
     Dates: start: 20171018, end: 20171019
  15. REVLIMID [Suspect]
     Active Substance: LENALIDOMIDE
     Dosage: 25 MILLIGRAM
     Route: 048
     Dates: start: 20160927, end: 20171107
  16. DARATUMUMAB [Concomitant]
     Active Substance: DARATUMUMAB
     Dosage: 1168 MG, QMO
     Route: 041
     Dates: start: 20160927, end: 20171018
  17. LANSOPRAZOLE. [Concomitant]
     Active Substance: LANSOPRAZOLE
     Indication: GASTROOESOPHAGEAL REFLUX DISEASE
     Dosage: 15 MG, QD
     Route: 048
     Dates: start: 201309
  18. REVLIMID [Suspect]
     Active Substance: LENALIDOMIDE
     Indication: PLASMA CELL MYELOMA
     Dosage: 105 MG, QD
     Route: 048
     Dates: start: 20160927, end: 20171107
  19. REVLIMID [Suspect]
     Active Substance: LENALIDOMIDE
     Dosage: 315 MG, UNK
     Route: 048
     Dates: start: 20161025, end: 20161114
  20. REVLIMID [Suspect]
     Active Substance: LENALIDOMIDE
     Dosage: 210 MG, UNK
     Route: 048
     Dates: start: 20161128, end: 20161218
  21. BICARBONATE [Concomitant]
     Indication: STOMATITIS
     Dosage: 750 ML, QD
     Route: 048
     Dates: start: 20161013
  22. PARACETAMOL [Concomitant]
     Active Substance: ACETAMINOPHEN
     Indication: ARTHRALGIA
     Dosage: 4 G, UNK
     Route: 048
     Dates: start: 20170320
  23. PARACETAMOL [Concomitant]
     Active Substance: ACETAMINOPHEN
     Indication: FRACTURE PAIN
  24. CARTEOLOL HYDROCHLORIDE. [Concomitant]
     Active Substance: CARTEOLOL HYDROCHLORIDE
     Indication: HYPERTONIA
     Dosage: 1 DF
     Route: 047
     Dates: start: 20160927
  25. MAGNESIUM [Concomitant]
     Active Substance: MAGNESIUM
     Indication: HYPOMAGNESAEMIA
     Dosage: 300 MG, QD
     Route: 048
     Dates: start: 20161212
  26. ZOLEDRONIC ACID [Concomitant]
     Active Substance: ZOLEDRONIC ACID
     Indication: PROPHYLAXIS
     Dosage: 4 MG, QMO
     Route: 041
     Dates: start: 20160928
  27. DARATUMUMAB [Concomitant]
     Active Substance: DARATUMUMAB
     Indication: PLASMA CELL MYELOMA
     Dosage: 1168 MILLIGRAM
     Route: 041
     Dates: start: 20160927, end: 20161011
  28. GLIMEPIRIDE. [Concomitant]
     Active Substance: GLIMEPIRIDE
     Indication: DIABETES MELLITUS
     Dosage: 4 G, QD
     Route: 048
     Dates: start: 20170808
  29. TRAMADOL. [Concomitant]
     Active Substance: TRAMADOL
     Indication: FRACTURE PAIN
     Dosage: 100 MG, QD
     Route: 058
     Dates: start: 20171019
  30. AMOXICILLIN SODIUM [Concomitant]
     Active Substance: AMOXICILLIN SODIUM
     Indication: PROPHYLAXIS
     Dosage: 1000 MG, QD
     Route: 048
     Dates: start: 20161226
  31. REVLIMID [Suspect]
     Active Substance: LENALIDOMIDE
     Dosage: 525 MG, QD
     Route: 048
     Dates: start: 20160927, end: 20171107
  32. REVLIMID [Suspect]
     Active Substance: LENALIDOMIDE
     Dosage: 15 MILLIGRAM
     Route: 048
     Dates: start: 20161025, end: 20161114
  33. ALPRAZOLAM. [Concomitant]
     Active Substance: ALPRAZOLAM
     Indication: DEPRESSION
     Dosage: 1 OT, QD
     Route: 048
     Dates: start: 20161025
  34. ACETYLSALICYLATE LYSINE [Concomitant]
     Active Substance: ASPIRIN DL-LYSINE
     Indication: THROMBOSIS PROPHYLAXIS
     Dosage: 75 MG, QD
     Route: 048
     Dates: start: 20161226
  35. DARATUMUMAB [Concomitant]
     Active Substance: DARATUMUMAB
     Dosage: 1168 MILLIGRAM
     Route: 041
     Dates: start: 20171018, end: 20171018
  36. VALACICLOVIR [Concomitant]
     Active Substance: VALACYCLOVIR HYDROCHLORIDE
     Indication: PROPHYLAXIS
     Dosage: 500 MG, QD
     Route: 048
     Dates: start: 20161005
  37. VENOFER [Concomitant]
     Active Substance: IRON SUCROSE
     Indication: BLOOD IRON DECREASED
     Dosage: 40 MG, QMO (1.3333 MILLIGRAM)
     Route: 041
     Dates: start: 20161004

REACTIONS (2)
  - Adenocarcinoma of colon [Recovered/Resolved]
  - Rectosigmoid cancer [Not Recovered/Not Resolved]

NARRATIVE: CASE EVENT DATE: 20171124
